FAERS Safety Report 15625654 (Version 1)
Quarter: 2018Q4

REPORT INFORMATION
  Report Type: Report from Study
  Country: None (occurrence: BR)
  Receive Date: 20181116
  Receipt Date: 20181116
  Transmission Date: 20190205
  Serious: Yes (Other)
  Sender: FDA-Public Use
  Company Number: BR-ABBVIE-18K-020-2551647-00

PATIENT
  Sex: Male

DRUGS (2)
  1. HUMIRA [Suspect]
     Active Substance: ADALIMUMAB
     Indication: ANKYLOSING SPONDYLITIS
     Route: 058
     Dates: start: 20160101, end: 2018
  2. NIMESULIDE [Concomitant]
     Active Substance: NIMESULIDE
     Indication: BACK PAIN

REACTIONS (3)
  - Lung infection [Unknown]
  - Eye degenerative disorder [Unknown]
  - Meningitis [Unknown]
